FAERS Safety Report 14227891 (Version 8)
Quarter: 2020Q2

REPORT INFORMATION
  Report Type: Spontaneous
  Country: FR (occurrence: FR)
  Receive Date: 20171127
  Receipt Date: 20200629
  Transmission Date: 20200713
  Serious: Yes (Life-Threatening, Other)
  Sender: FDA-Public Use
  Company Number: FR-PFIZER INC-2017501271

PATIENT
  Age: 8 Year
  Sex: Male

DRUGS (5)
  1. ETOPOSIDE. [Suspect]
     Active Substance: ETOPOSIDE
     Indication: ATYPICAL TERATOID/RHABDOID TUMOUR OF CNS
     Dosage: 50 MG/M2, UNK
     Route: 037
     Dates: start: 201604
  2. BEVACIZUMAB. [Suspect]
     Active Substance: BEVACIZUMAB
     Indication: ATYPICAL TERATOID/RHABDOID TUMOUR OF CNS
     Dosage: 10 MG/KG, CYCLIC (DAYS 1 AND 15, BIWEEKLY)
     Route: 042
     Dates: start: 201604
  3. CYTARABINE. [Suspect]
     Active Substance: CYTARABINE
     Indication: ATYPICAL TERATOID/RHABDOID TUMOUR OF CNS
     Dosage: 35 MG, MONTHLY  ON DAY 1 (LIPOSOMAL CYTARABINE)
     Route: 037
     Dates: start: 201604
  4. CELECOXIB. [Suspect]
     Active Substance: CELECOXIB
     Indication: ATYPICAL TERATOID/RHABDOID TUMOUR OF CNS
     Dosage: 400 MG (CONTINUOUS)
     Route: 048
     Dates: start: 201604
  5. CYCLOPHOSPHAMIDE. [Suspect]
     Active Substance: CYCLOPHOSPHAMIDE
     Indication: ATYPICAL TERATOID/RHABDOID TUMOUR OF CNS
     Dosage: 2.5 MG/KG, CYCLIC (ALTERNATING 21 DAY CYCLES)
     Route: 048
     Dates: start: 201604

REACTIONS (8)
  - Neutropenia [Recovered/Resolved]
  - Asthenia [Unknown]
  - Injection site reaction [Unknown]
  - Influenza [Unknown]
  - Toxicity to various agents [Unknown]
  - Product use in unapproved indication [Unknown]
  - Off label use [Unknown]
  - Product use issue [Unknown]

NARRATIVE: CASE EVENT DATE: 201604
